FAERS Safety Report 9728941 (Version 3)
Quarter: 2014Q2

REPORT INFORMATION
  Report Type: Report from Study
  Country: US (occurrence: US)
  Receive Date: 20131204
  Receipt Date: 20140602
  Transmission Date: 20141212
  Serious: Yes (Other)
  Sender: FDA-Public Use
  Company Number: US-US-EMD SERONO, INC.-7253454

PATIENT
  Sex: Female
  Weight: 79 kg

DRUGS (2)
  1. REBIF [Suspect]
     Indication: MULTIPLE SCLEROSIS
     Route: 058
     Dates: start: 20041126
  2. IMMUNOGLOBULIN [Concomitant]
     Indication: MULTIPLE SCLEROSIS

REACTIONS (7)
  - Invasive lobular breast carcinoma [Unknown]
  - Nausea [Not Recovered/Not Resolved]
  - Bone density decreased [Not Recovered/Not Resolved]
  - Oesophageal disorder [Unknown]
  - Erythema [Unknown]
  - Fatigue [Not Recovered/Not Resolved]
  - Injection site erythema [Not Recovered/Not Resolved]
